FAERS Safety Report 24292665 (Version 2)
Quarter: 2025Q2

REPORT INFORMATION
  Report Type: Spontaneous
  Country: US (occurrence: US)
  Receive Date: 20240906
  Receipt Date: 20250608
  Transmission Date: 20250717
  Serious: No
  Sender: COHERUS
  Company Number: US-COHERUS BIOSCIENCES, INC-2024-COH-US000790

PATIENT

DRUGS (2)
  1. UDENYCA [Suspect]
     Active Substance: PEGFILGRASTIM-CBQV
     Indication: Neutropenia
     Dosage: 6 MG, Q3WEEKS
     Route: 058
     Dates: start: 20240627, end: 20240627
  2. UDENYCA [Suspect]
     Active Substance: PEGFILGRASTIM-CBQV
     Dosage: 6 MG, Q3WEEKS
     Route: 058
     Dates: start: 20240807

REACTIONS (2)
  - Product dose omission issue [Recovered/Resolved]
  - Device malfunction [Unknown]

NARRATIVE: CASE EVENT DATE: 20240808
